FAERS Safety Report 16821895 (Version 2)
Quarter: 2019Q4

REPORT INFORMATION
  Report Type: Spontaneous
  Country: US (occurrence: US)
  Receive Date: 20190918
  Receipt Date: 20191010
  Transmission Date: 20200122
  Serious: Yes (Hospitalization, Other)
  Sender: FDA-Public Use
  Company Number: US-PFIZER INC-2019397717

PATIENT
  Age: 52 Year
  Sex: Female
  Weight: 76.66 kg

DRUGS (8)
  1. CALCIUM + MAGNESIUM + ZINK [Concomitant]
     Dosage: UNK, 2X/DAY (CALCIUM-100, MAG-500, ZINC-25 7:00 AM AND PM)
     Dates: start: 1998
  2. ATORVASTATIN [Concomitant]
     Active Substance: ATORVASTATIN
     Dosage: 10 MG, 1X/DAY (7:00PM)
     Dates: start: 20180903
  3. PHENOBARBITAL. [Concomitant]
     Active Substance: PHENOBARBITAL
     Dosage: UNK, 2X/DAY (7:00 AM AND PM)
     Dates: start: 1998
  4. WARFARIN [Concomitant]
     Active Substance: WARFARIN
     Dosage: 7.5 MG, DAILY (7:00PM)
     Dates: start: 20180903
  5. KEPPRA [Concomitant]
     Active Substance: LEVETIRACETAM
     Dosage: UNK, 2X/DAY (7:00 AM AND PM, 500, UNIT: UNKNOWN)
     Dates: start: 1998
  6. DILANTIN [Suspect]
     Active Substance: PHENYTOIN
     Indication: GENERALISED TONIC-CLONIC SEIZURE
     Dosage: 260 MG, DAILY (7:00 AM 60MG | 7:00 PM 200MG)
     Route: 048
     Dates: start: 1998
  7. DILANTIN [Suspect]
     Active Substance: PHENYTOIN
     Indication: PETIT MAL EPILEPSY
     Dosage: 200 MG, 2X/DAY [2 100 MG CAPSULES BY MOUTH IN THE MORNING AND AT NIGHT]
     Route: 048
  8. VITAMIN E [Concomitant]
     Active Substance: .ALPHA.-TOCOPHEROL
     Dosage: 2000 IU, 2X/DAY (7:00 AM AND PM)
     Dates: start: 1998

REACTIONS (5)
  - Cerebral thrombosis [Recovered/Resolved]
  - Drug ineffective [Unknown]
  - Kidney infection [Unknown]
  - Cerebrovascular accident [Recovered/Resolved]
  - Blood pressure increased [Recovered/Resolved]

NARRATIVE: CASE EVENT DATE: 19980903
